FAERS Safety Report 5096204-8 (Version None)
Quarter: 2006Q3

REPORT INFORMATION
  Report Type: 
  Country: None (occurrence: None)
  Receive Date: 20060905
  Receipt Date: 20060824
  Transmission Date: 20061208
  Serious: Yes (Hospitalization)
  Sender: FDA-Public Use
  Company Number: PHBS2006NZ12709

PATIENT
  Age: 11 Year
  Sex: Female

DRUGS (1)
  1. NEORAL [Suspect]
     Indication: ECZEMA
     Dosage: 50 MG, ONCE/SINGLE
     Route: 048
     Dates: start: 20060823, end: 20060823

REACTIONS (2)
  - SWELLING FACE [None]
  - URTICARIA GENERALISED [None]
